APPROVED DRUG PRODUCT: BUPROPION HYDROCHLORIDE
Active Ingredient: BUPROPION HYDROCHLORIDE
Strength: 200MG
Dosage Form/Route: TABLET, EXTENDED RELEASE;ORAL
Application: A202774 | Product #003
Applicant: JUBILANT GENERICS LTD
Approved: Oct 11, 2013 | RLD: No | RS: No | Type: DISCN